FAERS Safety Report 14726128 (Version 1)
Quarter: 2018Q2

REPORT INFORMATION
  Report Type: Spontaneous
  Country: PT (occurrence: PT)
  Receive Date: 20180406
  Receipt Date: 20180406
  Transmission Date: 20180711
  Serious: No
  Sender: FDA-Public Use
  Company Number: PT-REGULIS-2045228

PATIENT
  Age: 54 Year
  Sex: Female

DRUGS (1)
  1. METHYLENE BLUE. [Suspect]
     Active Substance: METHYLENE BLUE

REACTIONS (1)
  - Hypersensitivity [Unknown]
